FAERS Safety Report 4393795-7 (Version None)
Quarter: 2004Q3

REPORT INFORMATION
  Report Type: 
  Country: None (occurrence: None)
  Receive Date: 20040706
  Receipt Date: 20040621
  Transmission Date: 20050211
  Serious: No
  Sender: FDA-Public Use
  Company Number: 8299

PATIENT
  Sex: Female

DRUGS (2)
  1. METHOTREXATE [Suspect]
     Dosage: 400 MG ONCE
  2. CELECOXIB [Concomitant]

REACTIONS (3)
  - PARAESTHESIA [None]
  - TRIGEMINAL PALSY [None]
  - VISUAL DISTURBANCE [None]
